FAERS Safety Report 10036506 (Version 2)
Quarter: 2014Q1

REPORT INFORMATION
  Report Type: Report from Study
  Country: BR (occurrence: BR)
  Receive Date: 20140326
  Receipt Date: 20140326
  Transmission Date: 20141002
  Serious: Yes (Other)
  Sender: FDA-Public Use
  Company Number: PHHY2013BR145828

PATIENT
  Sex: Female
  Weight: 82 kg

DRUGS (8)
  1. SANDOSTATIN LAR [Suspect]
     Indication: ACROMEGALY
     Dosage: 10 MG ONCE PER MONTH
     Dates: start: 2012
  2. SANDOSTATIN LAR [Suspect]
     Dosage: 20 MG ONCE PER MONTH
     Dates: start: 2012
  3. SANDOSTATIN LAR [Suspect]
     Dosage: 10 MG ONCE PER MONTH
     Dates: start: 20140123
  4. DOSTINEX [Suspect]
     Indication: HORMONE LEVEL ABNORMAL
     Dosage: UNK UKN, TIW
     Dates: start: 201305
  5. VYVANSE [Concomitant]
     Dosage: UNK UKN, UNK
  6. SOMALGIN [Concomitant]
     Dosage: UNK UKN, UNK
  7. RIVOTRIL [Concomitant]
     Dosage: UNK UKN, UNK
  8. VERTIZINE D [Concomitant]
     Indication: LABYRINTHITIS
     Dosage: 10 MG, EVERY MONTH

REACTIONS (10)
  - Labyrinthitis [Recovering/Resolving]
  - Feeling abnormal [Recovered/Resolved]
  - Somnolence [Not Recovered/Not Resolved]
  - Chills [Not Recovered/Not Resolved]
  - Malaise [Not Recovered/Not Resolved]
  - Onychoclasis [Not Recovered/Not Resolved]
  - Headache [Not Recovered/Not Resolved]
  - Dizziness [Recovered/Resolved]
  - Alopecia [Not Recovered/Not Resolved]
  - Asthenia [Not Recovered/Not Resolved]
